FAERS Safety Report 4552396-8 (Version None)
Quarter: 2005Q1

REPORT INFORMATION
  Report Type: 
  Country: None (occurrence: None)
  Receive Date: 20050114
  Receipt Date: 20040422
  Transmission Date: 20050727
  Serious: No
  Sender: FDA-Public Use
  Company Number: US-GLAXOSMITHKLINE-A0508191A

PATIENT
  Age: 47 Year
  Sex: Male
  Weight: 67.3 kg

DRUGS (1)
  1. IMITREX [Suspect]
     Indication: HEADACHE
     Route: 058

REACTIONS (2)
  - BURNING SENSATION [None]
  - INJECTION SITE IRRITATION [None]
